FAERS Safety Report 15429872 (Version 1)
Quarter: 2018Q3

REPORT INFORMATION
  Report Type: Spontaneous
  Country: US (occurrence: US)
  Receive Date: 20180920
  Receipt Date: 20180920
  Transmission Date: 20181010
  Serious: Yes (Hospitalization)
  Sender: FDA-Public Use
  Company Number: None

PATIENT
  Age: 27 Year
  Sex: Female
  Weight: 90.7 kg

DRUGS (1)
  1. VIVITROL [Suspect]
     Active Substance: NALTREXONE
     Indication: ALCOHOLISM
     Dosage: ?          OTHER FREQUENCY:MONTHLY;?
     Route: 030

REACTIONS (4)
  - Hallucination [None]
  - Self-injurious ideation [None]
  - Perinatal depression [None]
  - Suicidal ideation [None]

NARRATIVE: CASE EVENT DATE: 20180913
